FAERS Safety Report 22632755 (Version 4)
Quarter: 2023Q4

REPORT INFORMATION
  Report Type: Report from Study
  Country: US (occurrence: US)
  Receive Date: 20230623
  Receipt Date: 20231130
  Transmission Date: 20240110
  Serious: Yes (Hospitalization, Other)
  Sender: FDA-Public Use
  Company Number: US-ABBVIE-5298857

PATIENT
  Sex: Male

DRUGS (1)
  1. HUMIRA [Suspect]
     Active Substance: ADALIMUMAB
     Indication: Psoriasis
     Dosage: FORM STRENGTH: 40MG, CITRATE FREE
     Route: 058
     Dates: start: 20220725, end: 202306

REACTIONS (4)
  - Lower limb fracture [Unknown]
  - Road traffic accident [Not Recovered/Not Resolved]
  - Unevaluable event [Unknown]
  - Multiple fractures [Unknown]

NARRATIVE: CASE EVENT DATE: 20230101
